FAERS Safety Report 7415986-0 (Version None)
Quarter: 2011Q2

REPORT INFORMATION
  Report Type: 
  Country: None (occurrence: None)
  Receive Date: 20110414
  Receipt Date: 20110317
  Transmission Date: 20111010
  Serious: No
  Sender: FDA-Public Use
  Company Number: US-B.I. PHARMACEUTICALS,INC./RIDGEFIELD-2011-BP-08554BP

PATIENT
  Age: 46 Year
  Sex: Male

DRUGS (5)
  1. CLONOPIN [Concomitant]
     Indication: ANXIETY
     Dosage: 30 MG
     Route: 048
     Dates: start: 20100901
  2. PERCOCET [Concomitant]
     Indication: THROMBOSIS
     Route: 048
     Dates: start: 20100901
  3. CELEXA [Concomitant]
     Indication: DEPRESSION
     Dosage: 40 MG
     Route: 048
     Dates: start: 20100901
  4. LISINOPRIL [Concomitant]
     Indication: HYPERTENSION
     Dosage: 20 MG
     Route: 048
     Dates: start: 20100101
  5. PRADAXA [Suspect]
     Indication: EMBOLISM ARTERIAL
     Dosage: 300 MG
     Route: 048
     Dates: start: 20110301

REACTIONS (1)
  - HEADACHE [None]
